FAERS Safety Report 10831905 (Version 1)
Quarter: 2015Q1

REPORT INFORMATION
  Report Type: Spontaneous
  Country: US (occurrence: US)
  Receive Date: 20150219
  Receipt Date: 20150219
  Transmission Date: 20150721
  Serious: No
  Sender: FDA-Public Use
  Company Number: US-ZOGENIX, INC.-2015ZX000003

PATIENT
  Sex: Male

DRUGS (1)
  1. ZOHYDRO [Suspect]
     Active Substance: HYDROCODONE BITARTRATE
     Indication: PRODUCT USED FOR UNKNOWN INDICATION
     Dates: start: 20141218

REACTIONS (4)
  - Fall [Recovering/Resolving]
  - Pruritus generalised [Recovering/Resolving]
  - Balance disorder [Recovering/Resolving]
  - Concussion [Recovering/Resolving]
